FAERS Safety Report 17472220 (Version 2)
Quarter: 2020Q2

REPORT INFORMATION
  Report Type: Spontaneous
  Country: US (occurrence: US)
  Receive Date: 20200228
  Receipt Date: 20200415
  Transmission Date: 20200713
  Serious: Yes (Disabling)
  Sender: FDA-Public Use
  Company Number: US-CELGENEUS-USA-20200208974

PATIENT
  Age: 60 Year
  Sex: Male

DRUGS (7)
  1. ZARXIO [Concomitant]
     Active Substance: FILGRASTIM-SNDZ
     Indication: COLONY STIMULATING FACTOR THERAPY
     Route: 058
     Dates: start: 20191127, end: 20191128
  2. REVLIMID [Suspect]
     Active Substance: LENALIDOMIDE
     Dosage: 10-5 MILLIGRAM
     Route: 048
     Dates: start: 201602
  3. WARFARIN [Concomitant]
     Active Substance: WARFARIN
     Indication: DEEP VEIN THROMBOSIS
     Dosage: 5 MILLIGRAM
     Route: 048
  4. REVLIMID [Suspect]
     Active Substance: LENALIDOMIDE
     Indication: PLASMA CELL MYELOMA
     Dosage: 25 MILLIGRAM
     Route: 048
     Dates: start: 201508
  5. VALTREX [Concomitant]
     Active Substance: VALACYCLOVIR HYDROCHLORIDE
     Indication: INFECTION PROPHYLAXIS
     Dosage: 500 MILLIGRAM
     Route: 048
     Dates: start: 2016
  6. REVLIMID [Suspect]
     Active Substance: LENALIDOMIDE
     Dosage: 5-10 MILLIGRAM
     Route: 048
     Dates: start: 201805
  7. REVLIMID [Suspect]
     Active Substance: LENALIDOMIDE
     Dosage: 5 MILLIGRAM
     Route: 048
     Dates: start: 201901, end: 20200320

REACTIONS (1)
  - Clostridium difficile colitis [Recovering/Resolving]

NARRATIVE: CASE EVENT DATE: 202002
